FAERS Safety Report 13764726 (Version 4)
Quarter: 2017Q3

REPORT INFORMATION
  Report Type: Report from Study
  Country: US (occurrence: US)
  Receive Date: 20170718
  Receipt Date: 20170825
  Transmission Date: 20171127
  Serious: Yes (Hospitalization)
  Sender: FDA-Public Use
  Company Number: US-GILEAD-2017-0283714

PATIENT
  Age: 62 Year
  Sex: Female

DRUGS (30)
  1. COUMADIN [Concomitant]
     Active Substance: WARFARIN SODIUM
  2. HYDROMORPHONE [Concomitant]
     Active Substance: HYDROMORPHONE
  3. LEVAQUIN [Concomitant]
     Active Substance: LEVOFLOXACIN
  4. ACIPHEX [Concomitant]
     Active Substance: RABEPRAZOLE SODIUM
  5. FEXOFENADINE [Concomitant]
     Active Substance: FEXOFENADINE\FEXOFENADINE HYDROCHLORIDE
  6. LEVOTHYROXINE. [Concomitant]
     Active Substance: LEVOTHYROXINE
  7. TYVASO [Concomitant]
     Active Substance: TREPROSTINIL
  8. AMBRISENTAN [Suspect]
     Active Substance: AMBRISENTAN
     Indication: PULMONARY ARTERIAL HYPERTENSION
     Dosage: 10 MG, QD
     Route: 065
     Dates: start: 20080506
  9. SENNA                              /00142201/ [Concomitant]
     Active Substance: SENNA LEAF
  10. BUMETANIDE ACTAVIS [Concomitant]
  11. DILTIAZEM. [Concomitant]
     Active Substance: DILTIAZEM
  12. KLOR-CON [Concomitant]
     Active Substance: POTASSIUM CHLORIDE
  13. PAROXETINE. [Concomitant]
     Active Substance: PAROXETINE
  14. XOPENEX [Concomitant]
     Active Substance: LEVALBUTEROL HYDROCHLORIDE
  15. AZITHROMYCIN ANHYDROUS. [Concomitant]
     Active Substance: AZITHROMYCIN ANHYDROUS
  16. LIDOCAINE. [Concomitant]
     Active Substance: LIDOCAINE
  17. WARFARIN [Concomitant]
     Active Substance: WARFARIN
     Dosage: 5 MG, QD
  18. FOLGARD [Concomitant]
  19. PLAVIX [Concomitant]
     Active Substance: CLOPIDOGREL BISULFATE
     Dosage: UNK
  20. ENOXAPARIN [Concomitant]
     Active Substance: ENOXAPARIN
     Dosage: UNK
  21. ALPRAZOLAM. [Concomitant]
     Active Substance: ALPRAZOLAM
  22. BENTYL [Concomitant]
     Active Substance: DICYCLOMINE HYDROCHLORIDE
  23. FABB [Concomitant]
  24. NITROBID                           /00003201/ [Concomitant]
     Active Substance: NITROGLYCERIN
  25. CLOPIDOGREL [Concomitant]
     Active Substance: CLOPIDOGREL BISULFATE
  26. FLUTICASONE. [Concomitant]
     Active Substance: FLUTICASONE
  27. FUROSEMIDE. [Concomitant]
     Active Substance: FUROSEMIDE
  28. ATROVENT [Concomitant]
     Active Substance: IPRATROPIUM BROMIDE
  29. PREDNISONE. [Concomitant]
     Active Substance: PREDNISONE
  30. ROSUVASTATIN. [Concomitant]
     Active Substance: ROSUVASTATIN

REACTIONS (3)
  - Drug dose omission [Not Recovered/Not Resolved]
  - Cardiac disorder [Not Recovered/Not Resolved]
  - Amnesia [Not Recovered/Not Resolved]

NARRATIVE: CASE EVENT DATE: 20170701
